FAERS Safety Report 8918483 (Version 1)
Quarter: 2012Q4

REPORT INFORMATION
  Report Type: 
  Country: US (occurrence: US)
  Receive Date: 20121120
  Receipt Date: 20121120
  Transmission Date: 20130627
  Serious: No
  Sender: FDA-Public Use
  Company Number: US-ASTRAZENECA-2012SE18268

PATIENT
  Age: 77 Year
  Sex: Female
  Weight: 88 kg

DRUGS (6)
  1. NEXIUM [Suspect]
     Indication: BARRETT^S OESOPHAGUS
     Route: 048
  2. LISINOPRIL [Suspect]
     Indication: HYPERTENSION
     Route: 048
  3. METOPROLOL  TARTRATE [Concomitant]
     Indication: HYPERTENSION
  4. SIMVASTATIN [Concomitant]
     Indication: BLOOD CHOLESTEROL ABNORMAL
  5. ALLOPURINOL [Concomitant]
     Indication: GOUT
  6. AMLODIPINE BESYLATE [Concomitant]
     Indication: HYPERTENSION

REACTIONS (3)
  - Eructation [Recovered/Resolved]
  - Dysgeusia [Recovered/Resolved]
  - Off label use [Unknown]
